FAERS Safety Report 19363154 (Version 2)
Quarter: 2021Q2

REPORT INFORMATION
  Report Type: Spontaneous
  Country: US (occurrence: US)
  Receive Date: 20210603
  Receipt Date: 20210617
  Transmission Date: 20210717
  Serious: Yes (Hospitalization)
  Sender: FDA-Public Use
  Company Number: US-TEVA-2021-US-1917466

PATIENT
  Age: 51 Year
  Sex: Male

DRUGS (1)
  1. EMTRICITABINE?TENOFOVIR [Suspect]
     Active Substance: EMTRICITABINE\TENOFOVIR
     Indication: PROPHYLAXIS AGAINST HIV INFECTION
     Route: 065

REACTIONS (2)
  - Dyslipidaemia [Recovering/Resolving]
  - Myocardial infarction [Unknown]
